FAERS Safety Report 6065188-8 (Version None)
Quarter: 2009Q1

REPORT INFORMATION
  Report Type: 
  Country: None (occurrence: None)
  Receive Date: 20090204
  Receipt Date: 20090123
  Transmission Date: 20090719
  Serious: Yes (Hospitalization)
  Sender: FDA-Public Use
  Company Number: US-CELGENEUS-163-21880-08111228

PATIENT
  Sex: Male

DRUGS (2)
  1. REVLIMID [Suspect]
     Route: 048
     Dates: start: 20080829
  2. REVLIMID [Suspect]
     Route: 048
     Dates: start: 20080212, end: 20080801

REACTIONS (2)
  - BONE DISORDER [None]
  - TUMOUR FLARE [None]
